FAERS Safety Report 18126914 (Version 2)
Quarter: 2020Q3

REPORT INFORMATION
  Report Type: Report from Study
  Country: None (occurrence: US)
  Receive Date: 20200810
  Receipt Date: 20200909
  Transmission Date: 20201103
  Serious: Yes (Hospitalization)
  Sender: FDA-Public Use
  Company Number: US-ABBVIE-20K-163-3476268-00

PATIENT
  Sex: Male

DRUGS (2)
  1. HUMIRA [Suspect]
     Active Substance: ADALIMUMAB
     Indication: CROHN^S DISEASE
     Route: 058
     Dates: start: 20200529, end: 20200726
  2. HUMIRA [Suspect]
     Active Substance: ADALIMUMAB
     Route: 058
     Dates: start: 20200729

REACTIONS (9)
  - Nausea [Recovering/Resolving]
  - Depressed mood [Recovering/Resolving]
  - Frustration tolerance decreased [Recovering/Resolving]
  - Diarrhoea [Recovering/Resolving]
  - Fear [Unknown]
  - Anxiety [Unknown]
  - Insomnia [Recovering/Resolving]
  - Crohn^s disease [Recovering/Resolving]
  - Loss of personal independence in daily activities [Recovered/Resolved]

NARRATIVE: CASE EVENT DATE: 2020
